FAERS Safety Report 6137766-9 (Version None)
Quarter: 2009Q1

REPORT INFORMATION
  Report Type: 
  Country: None (occurrence: None)
  Receive Date: 20090326
  Receipt Date: 20090314
  Transmission Date: 20090719
  Serious: Yes (Life-Threatening, Hospitalization, Other)
  Sender: FDA-Public Use
  Company Number: 2009-01042

PATIENT
  Sex: Female

DRUGS (1)
  1. VELCADE [Suspect]
     Indication: MULTIPLE MYELOMA
     Dosage: 2 MG, INTRAVENOUS
     Route: 042
     Dates: start: 20081223, end: 20090306

REACTIONS (5)
  - CENTRAL NERVOUS SYSTEM INFECTION [None]
  - LUNG INFECTION [None]
  - NEURITIS [None]
  - PARALYSIS [None]
  - SHOCK [None]
